FAERS Safety Report 5407943-0 (Version None)
Quarter: 2007Q3

REPORT INFORMATION
  Report Type: 
  Country: None (occurrence: None)
  Receive Date: 20070803
  Receipt Date: 20070717
  Transmission Date: 20080115
  Serious: Yes (Other)
  Sender: FDA-Public Use
  Company Number: 2007US-08698

PATIENT
  Age: 27 Year
  Sex: Female

DRUGS (2)
  1. ISOTRETINOIN [Suspect]
     Dosage: 2 AM, 2 PM, ORAL
     Route: 048
     Dates: start: 20070706, end: 20070710
  2. NUVARING [Suspect]
     Dates: end: 20070611

REACTIONS (5)
  - CONTRACEPTIVE DEVICE COMPLICATION [None]
  - DRUG EXPOSURE DURING PREGNANCY [None]
  - FUNGAL INFECTION [None]
  - PREGNANCY [None]
  - TREATMENT NONCOMPLIANCE [None]
